FAERS Safety Report 23228611 (Version 5)
Quarter: 2024Q2

REPORT INFORMATION
  Report Type: Report from Study
  Country: CO (occurrence: CO)
  Receive Date: 20231126
  Receipt Date: 20240424
  Transmission Date: 20240716
  Serious: Yes (Hospitalization)
  Sender: FDA-Public Use
  Company Number: CO-BAYER-2023A168283

PATIENT
  Age: 64 Year
  Sex: Male

DRUGS (1)
  1. VENTAVIS [Suspect]
     Active Substance: ILOPROST
     Indication: Pulmonary hypertension
     Dosage: 20 MCG/2ML+ INHALED OR INHALATORY + 6 OR 9 NEBULIZATIONS PER DAY
     Route: 055
     Dates: start: 20230603, end: 20240205

REACTIONS (3)
  - Pneumonia [Unknown]
  - Inappropriate schedule of product administration [Unknown]
  - Influenza [Unknown]

NARRATIVE: CASE EVENT DATE: 20230603
